FAERS Safety Report 22120357 (Version 1)
Quarter: 2023Q1

REPORT INFORMATION
  Report Type: Spontaneous
  Country: CN (occurrence: CN)
  Receive Date: 20230321
  Receipt Date: 20230321
  Transmission Date: 20230417
  Serious: Yes (Other)
  Sender: FDA-Public Use
  Company Number: CN-009507513-2303CHN000041

PATIENT
  Age: 90 Year
  Sex: Female
  Weight: 75 kg

DRUGS (3)
  1. CILASTATIN SODIUM\IMIPENEM [Suspect]
     Active Substance: CILASTATIN SODIUM\IMIPENEM
     Indication: Pneumonia
     Dosage: 0.5 GRAM, QID
     Route: 041
     Dates: start: 20230128, end: 20230209
  2. VANCOCIN [Concomitant]
     Active Substance: VANCOMYCIN HYDROCHLORIDE
     Indication: Pneumonia
     Dosage: 0.5 GRAM, BID
     Route: 041
     Dates: start: 20230129, end: 20230209
  3. DEXTROSE [Concomitant]
     Active Substance: DEXTROSE
     Indication: Medication dilution
     Dosage: 100ML, QID
     Route: 041
     Dates: start: 20230128, end: 20230209

REACTIONS (2)
  - Gastrointestinal fungal infection [Recovering/Resolving]
  - Urinary tract infection fungal [Recovering/Resolving]

NARRATIVE: CASE EVENT DATE: 20230205
